FAERS Safety Report 25176623 (Version 5)
Quarter: 2025Q2

REPORT INFORMATION
  Report Type: Spontaneous
  Country: EE (occurrence: EE)
  Receive Date: 20250409
  Receipt Date: 20250624
  Transmission Date: 20250717
  Serious: Yes (Other)
  Sender: ROCHE
  Company Number: EE-ROCHE-10000252896

PATIENT
  Age: 67 Year
  Sex: Male
  Weight: 73 kg

DRUGS (6)
  1. HERCEPTIN [Suspect]
     Active Substance: TRASTUZUMAB
     Indication: Oesophageal adenocarcinoma
     Route: 065
     Dates: start: 202305, end: 202306
  2. HERCEPTIN [Suspect]
     Active Substance: TRASTUZUMAB
     Indication: Adenocarcinoma gastric
  3. XELODA [Suspect]
     Active Substance: CAPECITABINE
     Indication: Oesophageal adenocarcinoma
     Route: 065
     Dates: start: 202303, end: 202306
  4. XELODA [Suspect]
     Active Substance: CAPECITABINE
     Indication: Adenocarcinoma gastric
  5. IRINOTECAN [Suspect]
     Active Substance: IRINOTECAN
     Indication: Oesophageal adenocarcinoma
     Route: 065
     Dates: start: 202303, end: 202305
  6. IRINOTECAN [Suspect]
     Active Substance: IRINOTECAN
     Indication: Adenocarcinoma gastric

REACTIONS (11)
  - Metastasis [Unknown]
  - Therapy non-responder [Unknown]
  - Onychomadesis [Unknown]
  - Diarrhoea [Unknown]
  - Seroma [Unknown]
  - Brain oedema [Unknown]
  - Central nervous system lesion [Unknown]
  - Hiatus hernia [Unknown]
  - Subclavian vein thrombosis [Unknown]
  - Skin exfoliation [Unknown]
  - Jugular vein thrombosis [Unknown]

NARRATIVE: CASE EVENT DATE: 20230701
